FAERS Safety Report 7236284-4 (Version None)
Quarter: 2011Q1

REPORT INFORMATION
  Report Type: 
  Country: None (occurrence: None)
  Receive Date: 20110120
  Receipt Date: 20110112
  Transmission Date: 20110831
  Serious: Yes (Disabling, Other)
  Sender: FDA-Public Use
  Company Number: US-MERCK-0703USA04384

PATIENT
  Age: 67 Year
  Sex: Female
  Weight: 73 kg

DRUGS (10)
  1. FOSAMAX [Suspect]
     Route: 048
     Dates: start: 19990101, end: 20080201
  2. FARESTON [Concomitant]
     Route: 065
     Dates: start: 19980101, end: 20030101
  3. EVISTA [Concomitant]
     Route: 065
     Dates: start: 19980101, end: 20030101
  4. AZATHIOPRINE [Concomitant]
     Route: 065
     Dates: start: 19900101
  5. FOSAMAX [Suspect]
     Indication: OSTEOPOROSIS
     Route: 048
     Dates: start: 20010901, end: 20060601
  6. FOSAMAX [Suspect]
     Route: 048
     Dates: start: 20010801, end: 20010901
  7. FOSAMAX [Suspect]
     Route: 048
     Dates: start: 20010601, end: 20010101
  8. FOSAMAX [Suspect]
     Route: 048
     Dates: start: 20010401, end: 20010701
  9. ATENOLOL [Concomitant]
     Route: 065
     Dates: start: 19900101
  10. DIPENTUM [Concomitant]
     Route: 065
     Dates: start: 19900101

REACTIONS (50)
  - BACK PAIN [None]
  - INTERVERTEBRAL DISC PROTRUSION [None]
  - SPINAL COLUMN STENOSIS [None]
  - MALAISE [None]
  - INTERVERTEBRAL DISC DEGENERATION [None]
  - EMOTIONAL DISTRESS [None]
  - NEPHROLITHIASIS [None]
  - OSTEOPENIA [None]
  - MYALGIA [None]
  - LUMBAR RADICULOPATHY [None]
  - PYOGENIC GRANULOMA [None]
  - PYREXIA [None]
  - BONE DENSITY DECREASED [None]
  - CATARACT [None]
  - NOCTURIA [None]
  - OROPHARYNGEAL PAIN [None]
  - HYPOTENSION [None]
  - HIP FRACTURE [None]
  - FACIAL ASYMMETRY [None]
  - FLANK PAIN [None]
  - FOOT FRACTURE [None]
  - ROTATOR CUFF SYNDROME [None]
  - COLITIS ULCERATIVE [None]
  - CONSTIPATION [None]
  - URGE INCONTINENCE [None]
  - LEFT VENTRICULAR HYPERTROPHY [None]
  - COLITIS ISCHAEMIC [None]
  - DIARRHOEA [None]
  - VULVOVAGINAL DRYNESS [None]
  - HORDEOLUM [None]
  - SACROILIITIS [None]
  - PAIN IN EXTREMITY [None]
  - NEURALGIA [None]
  - LUMBAR SPINAL STENOSIS [None]
  - SPINAL COLUMN INJURY [None]
  - OSTEONECROSIS OF JAW [None]
  - OSTEOMYELITIS [None]
  - ADVERSE DRUG REACTION [None]
  - ARTHRALGIA [None]
  - BODY HEIGHT DECREASED [None]
  - CHEST PAIN [None]
  - CORNEAL INFECTION [None]
  - CYST [None]
  - PELVIC FRACTURE [None]
  - SPINAL DISORDER [None]
  - SPINAL COMPRESSION FRACTURE [None]
  - LACTOSE INTOLERANCE [None]
  - ARTHROPATHY [None]
  - INSOMNIA [None]
  - FALL [None]
